FAERS Safety Report 21285914 (Version 2)
Quarter: 2022Q4

REPORT INFORMATION
  Report Type: Spontaneous
  Country: US (occurrence: US)
  Receive Date: 20220902
  Receipt Date: 20221219
  Transmission Date: 20230113
  Serious: No
  Sender: FDA-Public Use
  Company Number: US-VIIV HEALTHCARE LIMITED-US2022AMR124211

PATIENT
  Age: 50 Year
  Sex: Male
  Weight: 87.528 kg

DRUGS (9)
  1. CABENUVA [Suspect]
     Active Substance: CABOTEGRAVIR\RILPIVIRINE
     Indication: HIV infection CDC category B
     Dosage: UNK 600/900 MG EVERY 2 MONTHS
     Dates: start: 20220421
  2. CABENUVA [Suspect]
     Active Substance: CABOTEGRAVIR\RILPIVIRINE
     Dosage: UNK
     Dates: start: 20220519
  3. CABENUVA [Suspect]
     Active Substance: CABOTEGRAVIR\RILPIVIRINE
     Dosage: UNK
     Dates: start: 20220719, end: 20220819
  4. VOCABRIA [Suspect]
     Active Substance: CABOTEGRAVIR SODIUM
     Indication: HIV infection CDC category B
     Dosage: UNK
     Route: 048
  5. EDURANT [Suspect]
     Active Substance: RILPIVIRINE HYDROCHLORIDE
     Indication: HIV infection CDC category B
     Dosage: UNK
     Route: 048
  6. SUSTIVA [Concomitant]
     Active Substance: EFAVIRENZ
     Indication: Antiretroviral therapy
     Dosage: UNK
  7. HYDROCODONE [Concomitant]
     Active Substance: HYDROCODONE
     Indication: Product used for unknown indication
     Dosage: UNK
  8. MODAFINIL [Concomitant]
     Active Substance: MODAFINIL
     Indication: Product used for unknown indication
     Dosage: UNK
  9. BIKTARVY [Concomitant]
     Active Substance: BICTEGRAVIR SODIUM\EMTRICITABINE\TENOFOVIR ALAFENAMIDE FUMARATE
     Indication: Antiretroviral therapy

REACTIONS (3)
  - Viral load increased [Unknown]
  - Product use in unapproved therapeutic environment [Unknown]
  - Treatment failure [Unknown]

NARRATIVE: CASE EVENT DATE: 20220628
